FAERS Safety Report 14133220 (Version 1)
Quarter: 2017Q4

REPORT INFORMATION
  Report Type: Other
  Country: KR (occurrence: KR)
  Receive Date: 20171026
  Receipt Date: 20171026
  Transmission Date: 20180321
  Serious: Yes (Life-Threatening)
  Sender: FDA-Public Use
  Company Number: KR-FRESENIUS KABI-FK201708873

PATIENT
  Sex: Female
  Weight: 40 kg

DRUGS (1)
  1. FOSPHENYTOIN [Suspect]
     Active Substance: FOSPHENYTOIN\FOSPHENYTOIN SODIUM
     Indication: STATUS EPILEPTICUS
     Route: 042

REACTIONS (4)
  - Cardiogenic shock [Fatal]
  - Hypotension [Unknown]
  - Cardiac arrest [Fatal]
  - Bradycardia [Not Recovered/Not Resolved]
